FAERS Safety Report 17501177 (Version 7)
Quarter: 2022Q1

REPORT INFORMATION
  Report Type: Report from Study
  Country: US (occurrence: US)
  Receive Date: 20200305
  Receipt Date: 20220226
  Transmission Date: 20220423
  Serious: Yes (Other)
  Sender: FDA-Public Use
  Company Number: NVSC2020US062195

PATIENT
  Sex: Female

DRUGS (1)
  1. GLEEVEC [Suspect]
     Active Substance: IMATINIB MESYLATE
     Indication: Product used for unknown indication
     Dosage: UNK
     Route: 065

REACTIONS (8)
  - Leukaemia [Unknown]
  - Illness [Unknown]
  - Gait disturbance [Unknown]
  - Cough [Unknown]
  - Vision blurred [Unknown]
  - Visual impairment [Unknown]
  - Eating disorder [Unknown]
  - Product dose omission issue [Unknown]
